FAERS Safety Report 7303559-X (Version None)
Quarter: 2011Q1

REPORT INFORMATION
  Report Type: 
  Country: None (occurrence: None)
  Receive Date: 20110221
  Receipt Date: 20110217
  Transmission Date: 20110831
  Serious: Yes (Death, Life-Threatening, Hospitalization, Other)
  Sender: FDA-Public Use
  Company Number: PHHO2010AR17700

PATIENT
  Sex: Male
  Weight: 74 kg

DRUGS (6)
  1. BLINDED ENALAPRIL [Suspect]
     Indication: CARDIAC FAILURE
     Dosage: CODE NOT BROKEN
     Route: 048
     Dates: start: 20100812
  2. BLINDED ALISKIREN [Suspect]
     Indication: CARDIAC FAILURE
     Dosage: CODE NOT BROKEN
     Route: 048
     Dates: start: 20100812
  3. FUROSEMIDE [Suspect]
     Indication: CARDIAC FAILURE
  4. BLINDED NO TREATMENT RECEIVED [Suspect]
     Indication: CARDIAC FAILURE
     Dosage: CODE NOT BROKEN
     Route: 048
     Dates: start: 20100812
  5. COMPARATOR ENALAPRIL [Suspect]
  6. ALISKIREN [Suspect]

REACTIONS (9)
  - VENTRICULAR TACHYCARDIA [None]
  - CARDIAC ARREST [None]
  - BLOOD POTASSIUM DECREASED [None]
  - GASTRITIS [None]
  - ATRIAL FIBRILLATION [None]
  - CARDIAC FAILURE [None]
  - NAUSEA [None]
  - CARDIOVERSION [None]
  - HYPERTENSION [None]
